FAERS Safety Report 6511522-1 (Version None)
Quarter: 2009Q4

REPORT INFORMATION
  Report Type: 
  Country: None (occurrence: None)
  Receive Date: 20091222
  Receipt Date: 20090415
  Transmission Date: 20100525
  Serious: No
  Sender: FDA-Public Use
  Company Number: US-ASTRAZENECA-2009UW09563

PATIENT
  Age: 24842 Day
  Sex: Female
  Weight: 70.3 kg

DRUGS (7)
  1. CRESTOR [Suspect]
     Route: 048
     Dates: start: 20090409
  2. COENZYME Q10 [Concomitant]
     Dates: start: 20090409
  3. ASPIRIN [Concomitant]
  4. ARMOTHYROID [Concomitant]
  5. FOSINOPRIL SODIUM [Concomitant]
  6. SENOKOT [Concomitant]
  7. TOPROL-XL [Concomitant]
     Route: 048

REACTIONS (8)
  - BLOOD GLUCOSE INCREASED [None]
  - INSOMNIA [None]
  - MUSCULAR WEAKNESS [None]
  - MYALGIA [None]
  - NERVOUSNESS [None]
  - PALPITATIONS [None]
  - TINNITUS [None]
  - TREMOR [None]
